FAERS Safety Report 15722033 (Version 2)
Quarter: 2018Q4

REPORT INFORMATION
  Report Type: Spontaneous
  Country: CN (occurrence: CN)
  Receive Date: 20181214
  Receipt Date: 20181218
  Transmission Date: 20190205
  Serious: Yes (Other)
  Sender: FDA-Public Use
  Company Number: CN-ROCHE-2227753

PATIENT
  Age: 34 Year
  Sex: Female

DRUGS (12)
  1. HERCEPTIN [Suspect]
     Active Substance: TRASTUZUMAB
     Route: 042
     Dates: start: 201705, end: 201709
  2. XELODA [Suspect]
     Active Substance: CAPECITABINE
     Dosage: FROM DAY 1 TO DAY 14
     Route: 065
     Dates: start: 201501, end: 201508
  3. VINORELBINE [Concomitant]
     Active Substance: VINORELBINE\VINORELBINE TARTRATE
     Indication: HER-2 POSITIVE BREAST CANCER
     Route: 065
     Dates: start: 201804
  4. HERCEPTIN [Suspect]
     Active Substance: TRASTUZUMAB
     Dosage: ON DAY 1
     Route: 042
     Dates: start: 201501, end: 201508
  5. HERCEPTIN [Suspect]
     Active Substance: TRASTUZUMAB
     Dosage: ON DAY 1
     Route: 042
     Dates: start: 20161121, end: 20170515
  6. DOCETAXEL. [Concomitant]
     Active Substance: DOCETAXEL
     Dosage: ON DAY 1
     Route: 065
     Dates: start: 20161121, end: 20170515
  7. LAPATINIB [Concomitant]
     Active Substance: LAPATINIB
     Indication: HER-2 POSITIVE BREAST CANCER
     Route: 065
     Dates: start: 201804
  8. HERCEPTIN [Suspect]
     Active Substance: TRASTUZUMAB
     Route: 042
     Dates: start: 201709
  9. DOCETAXEL. [Concomitant]
     Active Substance: DOCETAXEL
     Dosage: ON DAY 1
     Route: 065
     Dates: start: 201501, end: 201508
  10. HERCEPTIN [Suspect]
     Active Substance: TRASTUZUMAB
     Indication: HER-2 POSITIVE BREAST CANCER
     Dosage: FIRST: 8MG/KG, THEN 6MG/KG
     Route: 042
     Dates: start: 201409, end: 201501
  11. XELODA [Suspect]
     Active Substance: CAPECITABINE
     Indication: HER-2 POSITIVE BREAST CANCER
     Dosage: FROM DAY 1 TO DAY 14
     Route: 065
     Dates: start: 201409, end: 201501
  12. DOCETAXEL. [Concomitant]
     Active Substance: DOCETAXEL
     Indication: HER-2 POSITIVE BREAST CANCER
     Dosage: ON DAY 1
     Route: 065
     Dates: start: 201409, end: 201501

REACTIONS (4)
  - White blood cell count decreased [Unknown]
  - Granulocyte count decreased [Unknown]
  - Hydrothorax [Unknown]
  - Palmar-plantar erythrodysaesthesia syndrome [Unknown]

NARRATIVE: CASE EVENT DATE: 201804
